FAERS Safety Report 13045733 (Version 1)
Quarter: 2016Q4

REPORT INFORMATION
  Report Type: Spontaneous
  Country: US (occurrence: US)
  Receive Date: 20161220
  Receipt Date: 20161220
  Transmission Date: 20170207
  Serious: Yes (Hospitalization, Other)
  Sender: FDA-Public Use
  Company Number: None

PATIENT
  Age: 64 Year
  Sex: Male
  Weight: 113.86 kg

DRUGS (5)
  1. LIRAGLUTIDE [Suspect]
     Active Substance: LIRAGLUTIDE
     Indication: TYPE 2 DIABETES MELLITUS
     Route: 058
     Dates: start: 20161019, end: 20161022
  2. GLARGINE [Concomitant]
  3. METFORMIN [Concomitant]
     Active Substance: METFORMIN HYDROCHLORIDE
  4. ASPART [Concomitant]
  5. LIRAGLUTIDE [Suspect]
     Active Substance: LIRAGLUTIDE
     Indication: OBESITY
     Route: 058
     Dates: start: 20161019, end: 20161022

REACTIONS (8)
  - Dysgeusia [None]
  - Influenza [None]
  - Pancreatitis acute [None]
  - Nausea [None]
  - Abdominal pain [None]
  - Vomiting [None]
  - Eructation [None]
  - Diarrhoea [None]

NARRATIVE: CASE EVENT DATE: 20161029
